FAERS Safety Report 7879982-1 (Version None)
Quarter: 2011Q4

REPORT INFORMATION
  Report Type: 
  Country: None (occurrence: None)
  Receive Date: 20111101
  Receipt Date: 20111021
  Transmission Date: 20120403
  Serious: Yes (Death)
  Sender: FDA-Public Use
  Company Number: US-ROCHE-782955

PATIENT
  Sex: Female
  Weight: 82.6 kg

DRUGS (18)
  1. ALBUMINAR-5 [Concomitant]
     Dosage: AT 6 PM.
     Route: 042
     Dates: start: 20110511, end: 20110511
  2. PACLITAXEL [Suspect]
     Indication: BREAST CANCER METASTATIC
     Dosage: FREQ:  D1,8,15 OF 28 DAY CYCLE
     Route: 042
  3. POTASSIUM CHLORIDE [Concomitant]
     Dosage: DOSE: 50 MEQ, CONTROLLED RELEASE TABLET
     Route: 048
     Dates: start: 20110510, end: 20110510
  4. ALBUMINAR-5 [Concomitant]
     Dosage: SINGLE DOSE, FORM: INFUSION
     Route: 042
     Dates: start: 20110511, end: 20110511
  5. ALBUMINAR-5 [Concomitant]
     Dosage: INFUSION PUMP
     Route: 042
     Dates: start: 20110512, end: 20110512
  6. COLACE [Concomitant]
     Route: 048
     Dates: start: 20110510, end: 20110512
  7. ASCORBIC ACID [Concomitant]
     Route: 048
     Dates: start: 20110511, end: 20110512
  8. LASIX [Concomitant]
     Route: 042
     Dates: start: 20110510, end: 20110510
  9. AVASTIN [Suspect]
     Indication: BREAST CANCER
     Route: 042
  10. NAFCILLIN SODIUM [Concomitant]
     Dates: start: 20110510, end: 20110511
  11. MIRALAX [Concomitant]
     Dosage: DOSE: 17 GM
     Route: 048
     Dates: start: 20110511, end: 20110512
  12. OS-CAL [Concomitant]
     Route: 048
     Dates: start: 20110511, end: 20110512
  13. THERAGENERIX [Concomitant]
     Route: 048
     Dates: start: 20110511, end: 20110512
  14. DOPAMINE HCL [Concomitant]
     Dosage: DOSE: 10UG/KG/MIN, FORM: INFUSION PUMP
     Route: 042
     Dates: start: 20110511, end: 20110512
  15. SODIUM CHLORIDE INJ [Concomitant]
     Dosage: FORM: INFUSION
     Dates: start: 20110511, end: 20110511
  16. LEVOPHED [Concomitant]
     Dosage: CONC: 4MG/250 ML, INFUSION PUMP
     Route: 042
     Dates: start: 20110511, end: 20110512
  17. LEVOPHED [Concomitant]
     Dosage: CONC: 16 MG/250 ML
     Route: 042
     Dates: start: 20110512, end: 20110512
  18. SODIUM BICARBONATE [Concomitant]
     Dosage: DOSE: 50 MEQ
     Route: 042
     Dates: start: 20110511, end: 20110511

REACTIONS (2)
  - INTRA-ABDOMINAL HAEMORRHAGE [None]
  - RETROPERITONEAL HAEMORRHAGE [None]
